FAERS Safety Report 25267143 (Version 1)
Quarter: 2025Q2

REPORT INFORMATION
  Report Type: Spontaneous
  Country: CN (occurrence: CN)
  Receive Date: 20250505
  Receipt Date: 20250505
  Transmission Date: 20250717
  Serious: Yes (Other)
  Sender: Norvium Bioscience
  Company Number: CN-Norvium Bioscience LLC-080102

PATIENT
  Age: 59 Year
  Sex: Male
  Weight: 0 kg

DRUGS (10)
  1. OXALIPLATIN [Suspect]
     Active Substance: OXALIPLATIN
     Indication: Rectal cancer
     Route: 042
     Dates: start: 20210304
  2. FLUOROURACIL [Suspect]
     Active Substance: FLUOROURACIL
     Indication: Rectal cancer
     Route: 042
     Dates: start: 20210304
  3. LEUCOVORIN [Suspect]
     Active Substance: LEUCOVORIN\LEUCOVORIN CALCIUM
     Indication: Rectal cancer
     Dates: start: 20210304
  4. TISLELIZUMAB [Suspect]
     Active Substance: TISLELIZUMAB
     Indication: Rectal cancer
     Dates: start: 20230315
  5. PYROTINIB [Suspect]
     Active Substance: PYROTINIB
     Indication: Rectal cancer
     Dates: start: 20230315
  6. TISLELIZUMAB [Suspect]
     Active Substance: TISLELIZUMAB
     Indication: Rectal cancer
     Dates: start: 20230405
  7. PYROTINIB [Suspect]
     Active Substance: PYROTINIB
     Indication: Rectal cancer
     Dates: start: 20230405
  8. OXALIPLATIN [Suspect]
     Active Substance: OXALIPLATIN
     Indication: Rectal cancer
     Dates: start: 20230315
  9. OXALIPLATIN [Suspect]
     Active Substance: OXALIPLATIN
     Indication: Rectal cancer
     Dates: start: 20230405
  10. FLUOROURACIL [Suspect]
     Active Substance: FLUOROURACIL
     Indication: Rectal cancer
     Dosage: OVER 46 HOURS
     Route: 042

REACTIONS (7)
  - Myelosuppression [Unknown]
  - Neoplasm progression [Recovering/Resolving]
  - Gastrointestinal disorder [Unknown]
  - Rash pruritic [Unknown]
  - Malaise [Unknown]
  - Nausea [Unknown]
  - Vomiting [Unknown]

NARRATIVE: CASE EVENT DATE: 20210101
